FAERS Safety Report 18252474 (Version 1)
Quarter: 2020Q3

REPORT INFORMATION
  Report Type: Spontaneous
  Country: US (occurrence: US)
  Receive Date: 20200910
  Receipt Date: 20200910
  Transmission Date: 20201103
  Serious: Yes (Other)
  Sender: FDA-Public Use
  Company Number: None

PATIENT
  Age: 73 Year
  Sex: Female
  Weight: 60.75 kg

DRUGS (4)
  1. CEPHALEXIN 500 MG [Suspect]
     Active Substance: CEPHALEXIN
     Indication: CYSTITIS
     Dosage: ?          QUANTITY:1 CAPSULE(S);?
     Route: 048
     Dates: start: 20200529, end: 20200605
  2. TRELEGY ELLIPTA [Concomitant]
     Active Substance: FLUTICASONE FUROATE\UMECLIDINIUM BROMIDE\VILANTEROL TRIFENATATE
  3. ALBUTEROL. [Concomitant]
     Active Substance: ALBUTEROL
  4. AMLODIPINE [Concomitant]
     Active Substance: AMLODIPINE BESYLATE

REACTIONS (1)
  - Gastrooesophageal reflux disease [None]

NARRATIVE: CASE EVENT DATE: 20200529
